FAERS Safety Report 14612071 (Version 1)
Quarter: 2018Q1

REPORT INFORMATION
  Report Type: Spontaneous
  Country: US (occurrence: US)
  Receive Date: 20180307
  Receipt Date: 20180307
  Transmission Date: 20180509
  Serious: Yes (Disabling, Other)
  Sender: FDA-Public Use
  Company Number: None

PATIENT
  Age: 41 Year
  Sex: Male
  Weight: 85.5 kg

DRUGS (3)
  1. AVASTIN [Suspect]
     Active Substance: BEVACIZUMAB
     Indication: MACULAR DEGENERATION
     Dosage: ?          OTHER FREQUENCY:TREATMENT EVERY 8;?
     Route: 047
  2. GLIPIZIDE. [Concomitant]
     Active Substance: GLIPIZIDE
  3. LISINIPRIL [Concomitant]
     Active Substance: LISINOPRIL

REACTIONS (2)
  - Eye infection [None]
  - Blindness [None]

NARRATIVE: CASE EVENT DATE: 20160408
